FAERS Safety Report 9239453 (Version 1)
Quarter: 2013Q2

REPORT INFORMATION
  Report Type: Report from Study
  Country: AR (occurrence: AR)
  Receive Date: 20130418
  Receipt Date: 20130418
  Transmission Date: 20140414
  Serious: Yes (Other)
  Sender: FDA-Public Use
  Company Number: PHHY2013AR037814

PATIENT
  Sex: Male

DRUGS (2)
  1. DIOVAN [Suspect]
     Indication: MITRAL VALVE DISEASE
     Dosage: 0.5 DF (160 MG), DAILY
     Route: 048
  2. DIOVAN [Suspect]
     Indication: OFF LABEL USE
     Dosage: 1 DF (80 MG ), DAILY
     Route: 048

REACTIONS (3)
  - Humerus fracture [Unknown]
  - Fall [Unknown]
  - Wrong technique in drug usage process [Recovered/Resolved]
